FAERS Safety Report 9263828 (Version 1)
Quarter: 2013Q2

REPORT INFORMATION
  Report Type: Spontaneous
  Country: US (occurrence: None)
  Receive Date: 20130429
  Receipt Date: 20130429
  Transmission Date: 20140414
  Serious: Yes (Life-Threatening, Hospitalization, Disabling)
  Sender: FDA-Public Use
  Company Number: None

PATIENT
  Age: 16 Year
  Sex: Female
  Weight: 42 kg

DRUGS (2)
  1. METHYLPHENIDATE [Suspect]
     Indication: CRANIOCEREBRAL INJURY
     Route: 048
  2. FISH OIL [Suspect]
     Route: 048

REACTIONS (8)
  - Lethargy [None]
  - Agitation [None]
  - Haemorrhagic stroke [None]
  - Subdural haemorrhage [None]
  - Hydrocephalus [None]
  - Intraventricular haemorrhage [None]
  - Swelling [None]
  - Procedural site reaction [None]
